FAERS Safety Report 6668057-5 (Version None)
Quarter: 2010Q2

REPORT INFORMATION
  Report Type: 
  Country: None (occurrence: None)
  Receive Date: 20100405
  Receipt Date: 20100322
  Transmission Date: 20101027
  Serious: Yes (Other)
  Sender: FDA-Public Use
  Company Number: GB-GENENTECH-300008

PATIENT
  Sex: Female
  Weight: 67 kg

DRUGS (2)
  1. XOLAIR [Suspect]
     Indication: ASTHMA
     Dosage: 300 MG, 2/MONTH
  2. XOLAIR [Suspect]
     Dosage: 450 MG, UNK
     Dates: start: 20100317

REACTIONS (3)
  - DRUG INEFFECTIVE [None]
  - SERUM SICKNESS [None]
  - UNDERDOSE [None]
